FAERS Safety Report 5588791-8 (Version None)
Quarter: 2008Q1

REPORT INFORMATION
  Report Type: 
  Country: None (occurrence: None)
  Receive Date: 20080111
  Receipt Date: 20080108
  Transmission Date: 20080703
  Serious: Yes (Life-Threatening)
  Sender: FDA-Public Use
  Company Number: B0502375A

PATIENT
  Age: 85 Year
  Sex: Female

DRUGS (2)
  1. AUGMENTIN '125' [Suspect]
     Indication: COUGH
     Route: 048
     Dates: start: 20071218, end: 20071218
  2. ANTICOAGULANTS (UNSPECIFIED) [Concomitant]

REACTIONS (3)
  - ASTHENIA [None]
  - ERYTHEMA [None]
  - TACHYCARDIA [None]
